FAERS Safety Report 6039348-6 (Version None)
Quarter: 2009Q1

REPORT INFORMATION
  Report Type: 
  Country: None (occurrence: None)
  Receive Date: 20090114
  Receipt Date: 20090108
  Transmission Date: 20090719
  Serious: Yes (Death, Other)
  Sender: FDA-Public Use
  Company Number: 2007-03885

PATIENT
  Age: 55 Year
  Sex: Male
  Weight: 73 kg

DRUGS (15)
  1. VELCADE [Suspect]
     Indication: MULTIPLE MYELOMA
     Dosage: 2.50 MG, INTRAVENOUS; 2 MG, INTRAVENOUS
     Route: 042
     Dates: start: 20070807, end: 20070817
  2. VELCADE [Suspect]
     Indication: MULTIPLE MYELOMA
     Dosage: 2.50 MG, INTRAVENOUS; 2 MG, INTRAVENOUS
     Route: 042
     Dates: start: 20070904, end: 20071207
  3. DEXAMETHASONE [Concomitant]
  4. FAMOTIDINE [Concomitant]
  5. SILECE (FLUNITRAZEPAM) [Concomitant]
  6. MAGNESIUM OXIDE (MAGNESIUM OXIDE) [Concomitant]
  7. PRIMPERAN TAB [Concomitant]
  8. PURSENNID (SENNA LEAF) [Concomitant]
  9. LOXONIN (LOXOPROFEN SODIUM) [Concomitant]
  10. ZOMETA [Concomitant]
  11. PLATELETS [Concomitant]
  12. ALLOPURINOL [Concomitant]
  13. URALYT-U (SODIUM CITRATE, POTASSIUM CITRATE) [Concomitant]
  14. TEGRETOL [Concomitant]
  15. RED BLOOD CELLS [Concomitant]

REACTIONS (8)
  - ANAEMIA [None]
  - BACTERIAL INFECTION [None]
  - BLOOD ALKALINE PHOSPHATASE INCREASED [None]
  - BLOOD LACTATE DEHYDROGENASE INCREASED [None]
  - BLOOD UREA INCREASED [None]
  - LIVER DISORDER [None]
  - NEOPLASM PROGRESSION [None]
  - PLATELET COUNT DECREASED [None]
